FAERS Safety Report 9600142 (Version 1)
Quarter: 2013Q4

REPORT INFORMATION
  Report Type: Spontaneous
  Country: US (occurrence: US)
  Receive Date: 20131004
  Receipt Date: 20131004
  Transmission Date: 20140711
  Serious: No
  Sender: FDA-Public Use
  Company Number: US-AMGEN-USASP2013032043

PATIENT
  Age: 55 Year
  Sex: Female

DRUGS (9)
  1. ENBREL [Suspect]
     Indication: PRODUCT USED FOR UNKNOWN INDICATION
     Dosage: 50 MG, QWK
     Route: 058
     Dates: end: 20130404
  2. METHOTREXATE [Concomitant]
     Dosage: 2.5 MG, UNK
  3. CELEBREX [Concomitant]
     Dosage: 400 MG, UNK
  4. SAVELLA [Concomitant]
     Dosage: 12.5 MG, UNK
  5. PREDNISONE [Concomitant]
     Dosage: 1 MG, UNK
  6. LYRICA [Concomitant]
     Dosage: 150 MG, UNK
  7. GERITOL COMPLETE [Concomitant]
     Dosage: UNK
  8. FERROUS SULFATE [Concomitant]
     Dosage: 160 MG, UNK
  9. PERCOCET-5 [Concomitant]
     Dosage: 325 MG, UNK

REACTIONS (1)
  - Drug ineffective [Unknown]
